FAERS Safety Report 13853926 (Version 1)
Quarter: 2017Q3

REPORT INFORMATION
  Report Type: Spontaneous
  Country: CA (occurrence: CA)
  Receive Date: 20170810
  Receipt Date: 20170810
  Transmission Date: 20171127
  Serious: Yes (Hospitalization)
  Sender: FDA-Public Use
  Company Number: CA-ASTRAZENECA-2017SE80860

PATIENT
  Age: 87 Year
  Sex: Male
  Weight: 74 kg

DRUGS (10)
  1. BISOPROLOL [Concomitant]
     Active Substance: BISOPROLOL
  2. ONGLYZA [Concomitant]
     Active Substance: SAXAGLIPTIN HYDROCHLORIDE
  3. METFORMIN [Concomitant]
     Active Substance: METFORMIN HYDROCHLORIDE
  4. ENTERIC COATED ASA [Concomitant]
     Active Substance: ASPIRIN
  5. GLICLAZIDE [Concomitant]
     Active Substance: GLICLAZIDE
  6. PERINDOPRIL [Concomitant]
     Active Substance: PERINDOPRIL
  7. FORXIGA [Suspect]
     Active Substance: DAPAGLIFLOZIN
     Indication: DIABETES MELLITUS
     Route: 048
  8. INDAPAMIDE. [Concomitant]
     Active Substance: INDAPAMIDE
  9. ISOSORBIDE MONONITRATE. [Concomitant]
     Active Substance: ISOSORBIDE MONONITRATE
  10. ROSUVASTATIN. [Concomitant]
     Active Substance: ROSUVASTATIN

REACTIONS (4)
  - Urinary incontinence [Recovering/Resolving]
  - Asthenia [Recovering/Resolving]
  - Blood creatinine increased [Recovering/Resolving]
  - Blood pressure decreased [Recovering/Resolving]
